FAERS Safety Report 8777704 (Version 1)
Quarter: 2012Q4

REPORT INFORMATION
  Report Type: 
  Country: GB (occurrence: GB)
  Receive Date: 20120911
  Receipt Date: 20120911
  Transmission Date: 20130627
  Serious: Yes (Hospitalization, Other)
  Sender: FDA-Public Use
  Company Number: GB-UCBSA-065095

PATIENT
  Age: 69 Year
  Sex: Female

DRUGS (12)
  1. FUROSEMIDE [Suspect]
  2. ISOSORBIDE MONONITRATE [Suspect]
  3. ASPIRIN [Suspect]
  4. CYCLIZINE [Suspect]
  5. DIAZEPAM [Suspect]
  6. FELODIPINE [Suspect]
  7. GLICLAZIDE [Suspect]
  8. HYOSCINE BUTYLBROMIDE [Suspect]
  9. LANSOPRAZOLE [Suspect]
  10. PAROXETINE [Suspect]
  11. SALBUTAMOL [Suspect]
  12. SIMVASTATIN [Suspect]

REACTIONS (1)
  - Angioedema [Unknown]
